FAERS Safety Report 20657300 (Version 1)
Quarter: 2022Q1

REPORT INFORMATION
  Report Type: Spontaneous
  Country: US (occurrence: US)
  Receive Date: 20220331
  Receipt Date: 20220331
  Transmission Date: 20220423
  Serious: No
  Sender: FDA-Public Use
  Company Number: US-TEVA-2022-US-2017277

PATIENT

DRUGS (2)
  1. FREMANEZUMAB [Suspect]
     Active Substance: FREMANEZUMAB
     Route: 065
  2. FREMANEZUMAB [Suspect]
     Active Substance: FREMANEZUMAB

REACTIONS (1)
  - Fatigue [Unknown]
